FAERS Safety Report 7494866-9 (Version None)
Quarter: 2011Q2

REPORT INFORMATION
  Report Type: 
  Country: None (occurrence: None)
  Receive Date: 20110520
  Receipt Date: 20110506
  Transmission Date: 20111010
  Serious: Yes (Hospitalization, Other)
  Sender: FDA-Public Use
  Company Number: US-BAYER-201015006BCC

PATIENT
  Age: 67 Year
  Sex: Female
  Weight: 85 kg

DRUGS (12)
  1. ASPIRIN [Suspect]
     Indication: CAROTID ARTERY OCCLUSION
     Dosage: 325 MG, QD
     Route: 048
     Dates: start: 20080501, end: 20100411
  2. CLOPIDOGREL [Suspect]
     Indication: CAROTID ARTERY OCCLUSION
     Dosage: 75 MG, QD
     Route: 048
     Dates: start: 20080501, end: 20100411
  3. PANTOPRAZOLE [Concomitant]
     Dosage: DAILY DOSE 40 MG
     Route: 048
     Dates: start: 20100411
  4. FUROSEMIDE [Concomitant]
     Dates: start: 20070101
  5. DIAZEPAM [Concomitant]
     Dates: start: 20000101
  6. SIMVASTATIN [Concomitant]
     Dates: start: 20070101
  7. CLOPIDOGREL [Suspect]
     Dosage: 75 MG, QD
     Route: 048
     Dates: start: 20100416
  8. ANALGESICS [Suspect]
     Indication: BACK PAIN
     Dosage: BLINDED DOSE (10 VC. 20 MG) EVERY 8 WEEKS
     Route: 042
     Dates: start: 20100319
  9. CITALOPRAM HYDROBROMIDE [Concomitant]
     Dates: start: 20090701
  10. VITAMINS NOS [Concomitant]
     Dates: start: 20000101
  11. LISINOPRIL [Concomitant]
     Dosage: DAILY DOSE 40 MG
     Route: 048
     Dates: start: 20100414
  12. AMLODIPINE [Concomitant]
     Dates: start: 20090901

REACTIONS (3)
  - GASTROINTESTINAL HAEMORRHAGE [None]
  - MELAENA [None]
  - ANAEMIA [None]
